FAERS Safety Report 5981728-9 (Version None)
Quarter: 2008Q4

REPORT INFORMATION
  Report Type: 
  Country: None (occurrence: None)
  Receive Date: 20081205
  Receipt Date: 20081117
  Transmission Date: 20090506
  Serious: No
  Sender: FDA-Public Use
  Company Number: US-B.I. PHARMACEUTICALS,INC./RIDGEFIELD-2008-BP-09256BP

PATIENT
  Sex: Female

DRUGS (8)
  1. COMBIVENT [Suspect]
     Indication: CHRONIC OBSTRUCTIVE PULMONARY DISEASE
     Dosage: 8PUF
     Dates: start: 20040101
  2. DIOVAN [Concomitant]
     Indication: HYPERTENSION
     Route: 048
  3. SERTRALINE [Concomitant]
     Indication: ANXIETY
     Route: 048
  4. LASIX [Concomitant]
     Indication: DIURETIC THERAPY
     Route: 048
  5. POTASSIUM CHLORIDE [Concomitant]
     Indication: MINERAL SUPPLEMENTATION
     Route: 048
  6. SYNTHROID [Concomitant]
     Indication: THYROID DISORDER
     Route: 048
  7. ZOLOFT [Concomitant]
  8. ALBUTEROL [Concomitant]

REACTIONS (2)
  - CHOKING SENSATION [None]
  - PRODUCT QUALITY ISSUE [None]
